FAERS Safety Report 6872340-8 (Version None)
Quarter: 2010Q3

REPORT INFORMATION
  Report Type: 
  Country: None (occurrence: None)
  Receive Date: 20100723
  Receipt Date: 20080923
  Transmission Date: 20110219
  Serious: No
  Sender: FDA-Public Use
  Company Number: US-PFIZER INC-2008081552

PATIENT
  Sex: Female
  Weight: 72.57 kg

DRUGS (3)
  1. CHANTIX [Suspect]
     Indication: SMOKING CESSATION THERAPY
     Route: 048
     Dates: start: 20080901
  2. VALIUM [Concomitant]
  3. LITHIUM [Concomitant]

REACTIONS (3)
  - ABDOMINAL DISCOMFORT [None]
  - NERVOUSNESS [None]
  - VOMITING [None]
